FAERS Safety Report 5628424-5 (Version None)
Quarter: 2008Q1

REPORT INFORMATION
  Report Type: 
  Country: None (occurrence: None)
  Receive Date: 20080131
  Receipt Date: 20071029
  Transmission Date: 20080703
  Serious: No
  Sender: FDA-Public Use
  Company Number: 163-21880-07101782

PATIENT
  Age: 69 Year
  Sex: Female

DRUGS (2)
  1. REVLIMID [Suspect]
     Indication: MULTIPLE MYELOMA
     Dosage: 15 MG, DAILY 28/28, ORAL
     Route: 048
     Dates: start: 20060909
  2. ASPIRIN [Concomitant]

REACTIONS (3)
  - DIARRHOEA [None]
  - HEAT STROKE [None]
  - PYREXIA [None]
